FAERS Safety Report 18649193 (Version 1)
Quarter: 2020Q4

REPORT INFORMATION
  Report Type: Spontaneous
  Country: EC (occurrence: EC)
  Receive Date: 20201222
  Receipt Date: 20201222
  Transmission Date: 20210114
  Serious: Yes (Other)
  Sender: FDA-Public Use
  Company Number: EC-IPSEN BIOPHARMACEUTICALS, INC.-2020-25653

PATIENT
  Age: 66 Year
  Sex: Female
  Weight: 75 kg

DRUGS (1)
  1. DYSPORT [Suspect]
     Active Substance: ABOBOTULINUMTOXINA
     Indication: FACIAL SPASM
     Dosage: 500 UNITS
     Route: 058
     Dates: start: 20180704

REACTIONS (1)
  - Meige^s syndrome [Recovering/Resolving]

NARRATIVE: CASE EVENT DATE: 20201216
